FAERS Safety Report 17958563 (Version 1)
Quarter: 2020Q2

REPORT INFORMATION
  Report Type: Report from Study
  Country: None (occurrence: US)
  Receive Date: 20200630
  Receipt Date: 20200630
  Transmission Date: 20200714
  Serious: Yes (Other)
  Sender: FDA-Public Use
  Company Number: US-ABBVIE-20K-163-3458728-00

PATIENT
  Age: 82 Year
  Sex: Female

DRUGS (1)
  1. HUMIRA [Suspect]
     Active Substance: ADALIMUMAB
     Indication: PSORIASIS
     Dosage: CF
     Route: 058

REACTIONS (4)
  - Hypotension [Unknown]
  - Paranasal sinus hypersecretion [Unknown]
  - Adverse drug reaction [Unknown]
  - Macular degeneration [Unknown]

NARRATIVE: CASE EVENT DATE: 202005
